FAERS Safety Report 11646240 (Version 1)
Quarter: 2015Q4

REPORT INFORMATION
  Report Type: Spontaneous
  Country: US (occurrence: US)
  Receive Date: 20151020
  Receipt Date: 20151020
  Transmission Date: 20160304
  Serious: No
  Sender: FDA-Public Use
  Company Number: US-ROCHE-1610125

PATIENT
  Sex: Female
  Weight: 70.37 kg

DRUGS (2)
  1. ESBRIET [Suspect]
     Active Substance: PIRFENIDONE
     Dosage: 2 CAPSULES IN MORNING, 3 CAPSULES IN AFTERNOON AND EVENING.
     Route: 048
     Dates: start: 20150512
  2. ESBRIET [Suspect]
     Active Substance: PIRFENIDONE
     Indication: IDIOPATHIC PULMONARY FIBROSIS
     Dosage: 3 CAPSULES OF 267 MG 3 TIMES A DAY
     Route: 048
     Dates: start: 20150512

REACTIONS (6)
  - Dyspepsia [Unknown]
  - Rash [Unknown]
  - Photosensitivity reaction [Unknown]
  - Dizziness [Unknown]
  - Gastric disorder [Unknown]
  - Discomfort [Unknown]
